FAERS Safety Report 11193663 (Version 1)
Quarter: 2015Q2

REPORT INFORMATION
  Report Type: Spontaneous
  Country: US (occurrence: US)
  Receive Date: 20150616
  Receipt Date: 20150616
  Transmission Date: 20150821
  Serious: Yes (Hospitalization)
  Sender: FDA-Public Use
  Company Number: US-MPIJNJ-2014MPI001590

PATIENT
  Age: 74 Year
  Sex: Female
  Weight: 66 kg

DRUGS (15)
  1. CHOLECALCIFEROL [Concomitant]
     Active Substance: CHOLECALCIFEROL
     Indication: SUPPLEMENTATION THERAPY
     Dosage: 2000 UNITS, QD
     Route: 048
     Dates: start: 20120109
  2. ASPIRIN. [Suspect]
     Active Substance: ASPIRIN
     Indication: PROPHYLAXIS
     Dosage: 81 MG, UNK
     Dates: start: 20120609
  3. ALOPURINOL [Concomitant]
     Active Substance: ALLOPURINOL
     Indication: PROPHYLAXIS
     Dosage: 300 MG, UNK
     Route: 048
     Dates: start: 20140206
  4. SENNOSIDE                          /00571901/ [Concomitant]
     Active Substance: SENNOSIDES A AND B
     Indication: CONSTIPATION
     Dosage: 4 DF, QD
     Route: 048
     Dates: start: 20130116
  5. TRAMADOL [Concomitant]
     Active Substance: TRAMADOL
     Indication: PAIN
     Dosage: 50 MG, PRN
     Route: 048
     Dates: start: 20140204, end: 20140213
  6. ACYCLOVIR                          /00587301/ [Concomitant]
     Active Substance: ACYCLOVIR
     Indication: PROPHYLAXIS
     Dosage: 400 MG, BID
     Route: 048
     Dates: start: 20110103
  7. SERTRALINE [Concomitant]
     Active Substance: SERTRALINE HYDROCHLORIDE
     Indication: ANXIETY
     Dosage: 100 MG, QD
     Route: 048
     Dates: start: 20011218
  8. LEVOTHYROXINE [Concomitant]
     Active Substance: LEVOTHYROXINE
     Indication: HYPOTHYROIDISM
     Dosage: 50 ?G, BID
     Route: 048
     Dates: start: 20110103
  9. VELCADE [Suspect]
     Active Substance: BORTEZOMIB
     Indication: PLASMA CELL MYELOMA
     Dosage: 1.3 MG/M2, DAYS I, 4, B, AND 11 OF CYCLE, CYCLE 21D
     Route: 042
     Dates: start: 20140211, end: 20140218
  10. MS CONTIN [Concomitant]
     Active Substance: MORPHINE SULFATE
  11. LORAZEPAM. [Concomitant]
     Active Substance: LORAZEPAM
     Indication: ANXIETY
     Dosage: 0.5 MG, BID
     Route: 048
     Dates: start: 20110316
  12. DEXAMETHASONE. [Suspect]
     Active Substance: DEXAMETHASONE
     Indication: PLASMA CELL MYELOMA
     Dosage: 20 MG. DAY 1, 2, 4, 5, B, 9, 11, 12, CYCLE 21D
     Route: 048
     Dates: start: 20140211, end: 20140219
  13. LYRICA [Concomitant]
     Active Substance: PREGABALIN
  14. ATIVAN [Concomitant]
     Active Substance: LORAZEPAM
  15. LACTULOSE. [Concomitant]
     Active Substance: LACTULOSE
     Indication: CONSTIPATION PROPHYLAXIS
     Dosage: 20 G, QD
     Route: 048
     Dates: start: 20140103, end: 20140301

REACTIONS (1)
  - Pneumonia [Recovered/Resolved]

NARRATIVE: CASE EVENT DATE: 20140221
